FAERS Safety Report 11402062 (Version 1)
Quarter: 2015Q3

REPORT INFORMATION
  Report Type: Spontaneous
  Country: US (occurrence: US)
  Receive Date: 20150821
  Receipt Date: 20150821
  Transmission Date: 20151125
  Serious: No
  Sender: FDA-Public Use
  Company Number: US-ROCHE-1356733

PATIENT
  Age: 24 Year
  Sex: Male

DRUGS (4)
  1. SOVALDI [Concomitant]
     Active Substance: SOFOSBUVIR
     Indication: ACUTE HEPATITIS C
     Route: 048
     Dates: start: 20140218
  2. RIBASPHERE [Concomitant]
     Active Substance: RIBAVIRIN
     Indication: ACUTE HEPATITIS C
     Route: 048
     Dates: start: 20140218
  3. PEGASYS [Suspect]
     Active Substance: PEGINTERFERON ALFA-2A
     Indication: ACUTE HEPATITIS C
     Route: 058
     Dates: start: 20140218
  4. FISH OIL [Concomitant]
     Active Substance: FISH OIL

REACTIONS (4)
  - Mood swings [Not Recovered/Not Resolved]
  - Unevaluable event [Unknown]
  - Rheumatoid arthritis [Not Recovered/Not Resolved]
  - Vomiting [Not Recovered/Not Resolved]

NARRATIVE: CASE EVENT DATE: 20140403
